FAERS Safety Report 7428006-9 (Version None)
Quarter: 2011Q2

REPORT INFORMATION
  Report Type: 
  Country: None (occurrence: None)
  Receive Date: 20110421
  Receipt Date: 20110418
  Transmission Date: 20111010
  Serious: Yes (Death, Other)
  Sender: FDA-Public Use
  Company Number: CH-TEVA-277539ISR

PATIENT
  Age: 57 Year
  Sex: Female

DRUGS (5)
  1. ANTITHYMOCYTE IMMUNOGLOBULIN [Suspect]
  2. METHYLPREDNISOLONE [Concomitant]
  3. PREDNISONE [Suspect]
  4. CYCLOSPORINE [Suspect]
  5. MYCOPHENOLIC ACID [Suspect]

REACTIONS (7)
  - SERRATIA INFECTION [None]
  - AMERICAN TRYPANOSOMIASIS [None]
  - MULTI-ORGAN FAILURE [None]
  - SKIN NECROSIS [None]
  - SHOCK [None]
  - PANNICULITIS [None]
  - HISTIOCYTOSIS HAEMATOPHAGIC [None]
